FAERS Safety Report 7083866-9 (Version None)
Quarter: 2010Q4

REPORT INFORMATION
  Report Type: 
  Country: None (occurrence: None)
  Receive Date: 20101025
  Receipt Date: 20101014
  Transmission Date: 20110411
  Serious: Yes (Other)
  Sender: FDA-Public Use
  Company Number: 2010JP005968

PATIENT
  Age: 43 Year
  Sex: Female
  Weight: 51.8 kg

DRUGS (10)
  1. TACROLIMUS [Suspect]
     Indication: LUPUS NEPHRITIS
     Dosage: 1.5 MG, /D, ORAL ; 1 MG, /D, ORAL ; 2 MG, /D, ORAL
     Route: 048
     Dates: start: 20091113, end: 20091224
  2. TACROLIMUS [Suspect]
     Indication: LUPUS NEPHRITIS
     Dosage: 1.5 MG, /D, ORAL ; 1 MG, /D, ORAL ; 2 MG, /D, ORAL
     Route: 048
     Dates: start: 20091225, end: 20100415
  3. TACROLIMUS [Suspect]
     Indication: LUPUS NEPHRITIS
     Dosage: 1.5 MG, /D, ORAL ; 1 MG, /D, ORAL ; 2 MG, /D, ORAL
     Route: 048
     Dates: start: 20100416
  4. PREDNISOLONE [Suspect]
     Indication: LUPUS NEPHRITIS
     Dosage: 15 MG, /D, ORAL
     Route: 048
  5. LANSOPRAZOLE [Concomitant]
  6. KETOPROFEN [Concomitant]
  7. ISODINE (POVIDONE-IODINE) [Concomitant]
  8. FOSAMAC (ALENDRONATE SODIUM) [Concomitant]
  9. LIPITOR (ATORVASTATIN CALIUM) [Concomitant]
  10. EPADEL (ETHYL ICOSAPENTATE) [Concomitant]

REACTIONS (1)
  - OSTEONECROSIS [None]
